FAERS Safety Report 19573740 (Version 2)
Quarter: 2021Q3

REPORT INFORMATION
  Report Type: Report from Study
  Country: FR (occurrence: FR)
  Receive Date: 20210717
  Receipt Date: 20210820
  Transmission Date: 20211014
  Serious: Yes (Death, Other)
  Sender: FDA-Public Use
  Company Number: FR-TAKEDA-2021TUS041836

PATIENT
  Age: 76 Year
  Sex: Male

DRUGS (12)
  1. TEDUGLUTIDE [Suspect]
     Active Substance: TEDUGLUTIDE
     Indication: SHORT-BOWEL SYNDROME
     Dosage: 3.2 MILLIGRAM (0.05 MG/KG), 7 DOSES PER WEEK
     Route: 065
     Dates: start: 20160413, end: 20170524
  2. TEDUGLUTIDE [Suspect]
     Active Substance: TEDUGLUTIDE
     Indication: SHORT-BOWEL SYNDROME
     Dosage: 3.2 MILLIGRAM (0.05 MG/KG), 7 DOSES PER WEEK
     Route: 065
     Dates: start: 20160413, end: 20170524
  3. TEDUGLUTIDE [Suspect]
     Active Substance: TEDUGLUTIDE
     Indication: SHORT-BOWEL SYNDROME
     Dosage: 3.2 MILLIGRAM (0.05 MG/KG), 7 DOSES PER WEEK
     Route: 065
     Dates: start: 20160413, end: 20170524
  4. WARFARINE [Concomitant]
     Active Substance: WARFARIN
     Indication: PROPHYLAXIS
     Dosage: 3 MILLIGRAM, QD
     Route: 048
     Dates: end: 20181009
  5. TEDUGLUTIDE [Suspect]
     Active Substance: TEDUGLUTIDE
     Dosage: 1.6 MILLIGRAM (0.02 MG/KG), 7 DOSES PER WEEK
     Route: 065
     Dates: start: 20170525
  6. ULTRA?LEVURE [Concomitant]
     Active Substance: SACCHAROMYCES CEREVISIAE
     Indication: BACTERIAL INFECTION
     Dosage: 200 MILLIGRAM, 1 DAY/WEEKS 2 AND 4
     Route: 048
     Dates: start: 201710
  7. TEDUGLUTIDE [Suspect]
     Active Substance: TEDUGLUTIDE
     Indication: SHORT-BOWEL SYNDROME
     Dosage: 3.2 MILLIGRAM (0.05 MG/KG), 7 DOSES PER WEEK
     Route: 065
     Dates: start: 20160413, end: 20170524
  8. ENOXAPARINE SODIQUE [Concomitant]
     Active Substance: ENOXAPARIN SODIUM
     Indication: PROPHYLAXIS
     Dosage: 6000 UNITS, QD
     Route: 058
     Dates: start: 20181009
  9. TEDUGLUTIDE [Suspect]
     Active Substance: TEDUGLUTIDE
     Dosage: 1.6 MILLIGRAM (0.02 MG/KG), 7 DOSES PER WEEK
     Route: 065
     Dates: start: 20170525
  10. TEDUGLUTIDE [Suspect]
     Active Substance: TEDUGLUTIDE
     Dosage: 1.6 MILLIGRAM (0.02 MG/KG), 7 DOSES PER WEEK
     Route: 065
     Dates: start: 20170525
  11. TEDUGLUTIDE [Suspect]
     Active Substance: TEDUGLUTIDE
     Dosage: 1.6 MILLIGRAM (0.02 MG/KG), 7 DOSES PER WEEK
     Route: 065
     Dates: start: 20170525
  12. AZITHROMYCINE [Concomitant]
     Active Substance: AZITHROMYCIN
     Indication: COLITIS
     Dosage: 1 TABS, QD
     Route: 048
     Dates: start: 20180403, end: 201804

REACTIONS (1)
  - Cardiac arrest [Fatal]

NARRATIVE: CASE EVENT DATE: 20210104
